FAERS Safety Report 11546517 (Version 1)
Quarter: 2015Q3

REPORT INFORMATION
  Report Type: Spontaneous
  Country: US (occurrence: US)
  Receive Date: 20150924
  Receipt Date: 20150924
  Transmission Date: 20151125
  Serious: No
  Sender: FDA-Public Use
  Company Number: US-WATSON-2014-28426

PATIENT
  Age: 80 Year
  Sex: Male

DRUGS (5)
  1. CARAFATE [Suspect]
     Active Substance: SUCRALFATE
     Indication: OESOPHAGEAL DISORDER
     Dosage: 8 DF, QID, PRIOR TO EACH MEAL
     Route: 048
     Dates: start: 201408
  2. CARAFATE [Suspect]
     Active Substance: SUCRALFATE
     Indication: OESOPHAGEAL DISORDER
     Dosage: 1 G (1/2 HOUR PRIOR TO EACH MEAL AND AT BEDTIME)
     Route: 048
     Dates: start: 201304
  3. CARAFATE [Suspect]
     Active Substance: SUCRALFATE
     Indication: GASTRIC DISORDER
  4. CARAFATE [Suspect]
     Active Substance: SUCRALFATE
     Indication: GASTRIC DISORDER
     Dosage: UNK
     Route: 065
     Dates: start: 201408, end: 20140818
  5. OMEPRAZOLE. [Concomitant]
     Active Substance: OMEPRAZOLE
     Indication: GASTRIC PH DECREASED
     Dosage: 40 MG, QD
     Route: 048
     Dates: start: 2011

REACTIONS (4)
  - Wrong technique in product usage process [Unknown]
  - Nausea [Unknown]
  - Dysphagia [Unknown]
  - Abdominal discomfort [Unknown]

NARRATIVE: CASE EVENT DATE: 201408
